FAERS Safety Report 7995448-2 (Version None)
Quarter: 2011Q4

REPORT INFORMATION
  Report Type: 
  Country: None (occurrence: None)
  Receive Date: 20111220
  Receipt Date: 20111214
  Transmission Date: 20120403
  Serious: Yes (Other)
  Sender: FDA-Public Use
  Company Number: US-BAYER-200923272NA

PATIENT
  Age: 55 Year
  Sex: Female
  Weight: 57 kg

DRUGS (21)
  1. TRASYLOL [Suspect]
     Indication: VENTRICULAR ASSIST DEVICE INSERTION
     Dosage: 100 FOLLOWED BY 50CC/HR
     Route: 042
     Dates: start: 20040901, end: 20040901
  2. FUROSEMIDE [Concomitant]
     Dosage: 80 MG
     Route: 048
     Dates: start: 20040901, end: 20041012
  3. IPRATROPIUM BROMIDE [Concomitant]
     Dosage: 18 MCG
     Dates: start: 20040831, end: 20040920
  4. HEPARIN [Concomitant]
     Dosage: 10,000 UNITS
     Route: 042
     Dates: start: 20040901, end: 20040913
  5. LIDOCAINE [Concomitant]
     Dosage: 100 MG, UNK
     Route: 042
     Dates: start: 20040901
  6. FUROSEMIDE [Concomitant]
     Dosage: 40 MG, UNK
     Route: 048
     Dates: start: 20040901, end: 20041012
  7. MILRINONE [Concomitant]
     Dosage: 20 MG, UNK
     Dates: start: 20040831, end: 20040920
  8. ZYRTEC [Concomitant]
     Dosage: 10 MG, UNK
     Route: 048
  9. FLUCONAZOLE [Concomitant]
     Dosage: 100 ML, UNK
     Route: 048
     Dates: start: 20040831, end: 20040916
  10. HEPARIN [Concomitant]
     Dosage: 5000 U, UNK
     Route: 042
     Dates: start: 20040901, end: 20040913
  11. LORAZEPAM [Concomitant]
     Indication: ANXIETY
     Dosage: UNK
     Dates: start: 20030101
  12. COREG [Concomitant]
     Dosage: 3.125 MG, UNK
     Route: 048
     Dates: start: 20040809
  13. DOPAMINE HCL [Concomitant]
     Dosage: UNK
     Route: 042
     Dates: start: 20040901
  14. ACETYLSALICYLIC ACID SRT [Concomitant]
     Dosage: 81 MG, UNK
     Route: 048
     Dates: start: 20040809, end: 20040920
  15. LIPITOR [Concomitant]
     Dosage: 40 MG, UNK
     Route: 048
     Dates: start: 20040808
  16. BENADRYL [Concomitant]
     Dosage: 50 MG, UNK
     Route: 042
     Dates: start: 20040901
  17. CELEXA [Concomitant]
     Dosage: 20 MG, UNK
     Route: 048
     Dates: start: 20040808
  18. DIOVAN [Concomitant]
     Dosage: UNK
     Route: 048
     Dates: start: 20040809
  19. INSPRA [Concomitant]
     Dosage: 25 MG, UNK
     Dates: start: 20040809
  20. FLUCONAZOLE [Concomitant]
     Dosage: 200 ML
     Route: 048
     Dates: start: 20040831, end: 20040916
  21. NITROUS OXIDE [Concomitant]
     Dosage: UNK
     Dates: start: 20040901

REACTIONS (9)
  - UNEVALUABLE EVENT [None]
  - FEAR [None]
  - ANHEDONIA [None]
  - RENAL FAILURE [None]
  - ANXIETY [None]
  - PAIN [None]
  - DEPRESSION [None]
  - INJURY [None]
  - EMOTIONAL DISTRESS [None]
